FAERS Safety Report 8848296 (Version 1)
Quarter: 2012Q4

REPORT INFORMATION
  Report Type: 
  Country: DE (occurrence: DE)
  Receive Date: 20121018
  Receipt Date: 20121018
  Transmission Date: 20130627
  Serious: Yes (Disabling)
  Sender: FDA-Public Use
  Company Number: DE-009507513-1210DEU005672

PATIENT
  Age: 67 Year
  Sex: Female

DRUGS (1)
  1. EZETROL [Suspect]
     Indication: LIPIDS INCREASED
     Dosage: 10 mg, qd
     Route: 048
     Dates: start: 20120830

REACTIONS (2)
  - Dyspnoea [Not Recovered/Not Resolved]
  - Myalgia [Not Recovered/Not Resolved]
